FAERS Safety Report 17727196 (Version 2)
Quarter: 2020Q2

REPORT INFORMATION
  Report Type: Spontaneous
  Country: US (occurrence: US)
  Receive Date: 20200430
  Receipt Date: 20200605
  Transmission Date: 20200714
  Serious: Yes (Hospitalization)
  Sender: FDA-Public Use
  Company Number: US-ROCHE-2592267

PATIENT
  Age: 65 Year
  Sex: Female

DRUGS (13)
  1. ALBUTEROL [SALBUTAMOL] [Concomitant]
     Active Substance: ALBUTEROL
  2. FOLIC ACID. [Concomitant]
     Active Substance: FOLIC ACID
  3. TORSEMIDE. [Concomitant]
     Active Substance: TORSEMIDE
  4. ANASTROZOLE. [Concomitant]
     Active Substance: ANASTROZOLE
  5. KLOR-CON M20 [Concomitant]
     Active Substance: POTASSIUM CHLORIDE
  6. ALLOPURINOL. [Concomitant]
     Active Substance: ALLOPURINOL
  7. SIMVASTATIN. [Concomitant]
     Active Substance: SIMVASTATIN
  8. PROLIA [Concomitant]
     Active Substance: DENOSUMAB
  9. PREDNISONE. [Concomitant]
     Active Substance: PREDNISONE
  10. ESBRIET [Suspect]
     Active Substance: PIRFENIDONE
     Indication: IDIOPATHIC PULMONARY FIBROSIS
     Dosage: ONGOING-YES
     Route: 048
     Dates: start: 20161115
  11. DILTIAZEM. [Concomitant]
     Active Substance: DILTIAZEM
  12. ORPHENADRINE [Concomitant]
     Active Substance: ORPHENADRINE
  13. OMEPRAZOLE. [Concomitant]
     Active Substance: OMEPRAZOLE

REACTIONS (2)
  - Diarrhoea [Unknown]
  - Bronchitis [Unknown]

NARRATIVE: CASE EVENT DATE: 202003
